FAERS Safety Report 6757131-0 (Version None)
Quarter: 2010Q2

REPORT INFORMATION
  Report Type: 
  Country: None (occurrence: None)
  Receive Date: 20100605
  Receipt Date: 20100525
  Transmission Date: 20101027
  Serious: Yes (Death, Other)
  Sender: FDA-Public Use
  Company Number: NL-ROCHE-672710

PATIENT
  Age: 58 Year
  Sex: Male

DRUGS (2)
  1. TAMIFLU [Suspect]
     Indication: H1N1 INFLUENZA
     Route: 048
     Dates: start: 20090101
  2. ZANAMIVIR [Suspect]
     Indication: H1N1 INFLUENZA
     Route: 042

REACTIONS (2)
  - DRUG INEFFECTIVE [None]
  - PATHOGEN RESISTANCE [None]
